FAERS Safety Report 6114706-X (Version None)
Quarter: 2009Q1

REPORT INFORMATION
  Report Type: 
  Country: None (occurrence: None)
  Receive Date: 20090313
  Receipt Date: 20090303
  Transmission Date: 20090719
  Serious: Yes (Other)
  Sender: FDA-Public Use
  Company Number: PHEH2009US00458

PATIENT

DRUGS (4)
  1. FEMARA [Suspect]
     Indication: BREAST CANCER
     Dosage: UNK
     Dates: end: 20081230
  2. FEMARA [Suspect]
     Indication: BONE NEOPLASM MALIGNANT
  3. CHEMOTHERAPEUTICS NOS [Suspect]
     Indication: BREAST CANCER
     Dosage: UNK
     Dates: end: 20081230
  4. CHEMOTHERAPEUTICS NOS [Suspect]
     Indication: BONE NEOPLASM MALIGNANT

REACTIONS (9)
  - AMNESIA [None]
  - CARDIAC DISORDER [None]
  - CONSTIPATION [None]
  - DIZZINESS [None]
  - FALL [None]
  - HYPOTENSION [None]
  - NAUSEA [None]
  - SYNCOPE [None]
  - WEIGHT INCREASED [None]
